FAERS Safety Report 9946493 (Version 2)
Quarter: 2014Q1

REPORT INFORMATION
  Report Type: Spontaneous
  Country: US (occurrence: US)
  Receive Date: 20140303
  Receipt Date: 20140303
  Transmission Date: 20141002
  Serious: No
  Sender: FDA-Public Use
  Company Number: US-AMGEN-USASP2013068375

PATIENT
  Age: 52 Year
  Sex: Male

DRUGS (7)
  1. ENBREL [Suspect]
     Indication: RHEUMATOID ARTHRITIS
     Dosage: 50 MG, QWK
     Route: 058
     Dates: start: 20130517, end: 201309
  2. AMLODIPINE [Concomitant]
     Dosage: 10 MG, UNK
  3. PROAIR HFA [Concomitant]
     Dosage: UNK
  4. VERAPAMIL [Concomitant]
     Dosage: 100 MG ER
  5. TRIAMTERENE/HCTZ [Concomitant]
     Dosage: 37.5-25
  6. FOLIC ACID [Concomitant]
     Dosage: UNK
  7. METHOTREXATE [Concomitant]
     Dosage: 2.5 MG, UNK

REACTIONS (4)
  - Therapeutic response decreased [Unknown]
  - Condition aggravated [Not Recovered/Not Resolved]
  - Pain in extremity [Not Recovered/Not Resolved]
  - Nasopharyngitis [Not Recovered/Not Resolved]
